FAERS Safety Report 11220422 (Version 1)
Quarter: 2015Q2

REPORT INFORMATION
  Report Type: Spontaneous
  Country: US (occurrence: None)
  Receive Date: 20150625
  Receipt Date: 20150625
  Transmission Date: 20150821
  Serious: Yes (Hospitalization)
  Sender: FDA-Public Use
  Company Number: None

PATIENT
  Age: 59 Year
  Sex: Male
  Weight: 87.7 kg

DRUGS (1)
  1. CASODEX [Suspect]
     Active Substance: BICALUTAMIDE
     Dosage: THIS IS THE DAILY DOSE IN MG^S THAT THE PATIENT TAKES.
     Dates: end: 20141023

REACTIONS (10)
  - Hyperglycaemia [None]
  - Thrombophlebitis [None]
  - Nausea [None]
  - Vomiting [None]
  - Acute kidney injury [None]
  - Hyperosmolar hyperglycaemic state [None]
  - Biliary dyskinesia [None]
  - Asthenia [None]
  - Pancreatitis [None]
  - Cellulitis [None]

NARRATIVE: CASE EVENT DATE: 20141023
